FAERS Safety Report 18840728 (Version 2)
Quarter: 2021Q1

REPORT INFORMATION
  Report Type: Other
  Country: HR (occurrence: HR)
  Receive Date: 20210204
  Receipt Date: 20210208
  Transmission Date: 20210419
  Serious: Yes (Other)
  Sender: FDA-Public Use
  Company Number: HR-CELLTRION INC.-2021HR001034

PATIENT

DRUGS (1)
  1. INFLECTRA [Suspect]
     Active Substance: INFLIXIMAB-DYYB
     Indication: INFLAMMATORY BOWEL DISEASE
     Dosage: 500 MG, EVERY 8 WEEKS
     Route: 042
     Dates: start: 20190928, end: 20191118

REACTIONS (2)
  - Condition aggravated [Not Recovered/Not Resolved]
  - Frequent bowel movements [Not Recovered/Not Resolved]

NARRATIVE: CASE EVENT DATE: 20191118
